FAERS Safety Report 13580500 (Version 2)
Quarter: 2017Q3

REPORT INFORMATION
  Report Type: Report from Study
  Country: US (occurrence: US)
  Receive Date: 20170525
  Receipt Date: 20170714
  Transmission Date: 20171127
  Serious: Yes (Other)
  Sender: FDA-Public Use
  Company Number: US-PFIZER INC-2017225701

PATIENT
  Age: 71 Year
  Sex: Female

DRUGS (2)
  1. IBRANCE [Suspect]
     Active Substance: PALBOCICLIB
     Dosage: 100 MG, CYCLIC, (DAILY; 3 WKS ON + 1 WK OFF )
     Route: 048
     Dates: start: 20151103
  2. IBRANCE [Suspect]
     Active Substance: PALBOCICLIB
     Indication: BREAST CANCER
     Dosage: 125 MG, CYCLIC, (DAILY ; 3 WEEKS ON/ 1 WEEK OFF )
     Route: 048
     Dates: start: 20150918

REACTIONS (4)
  - Chills [Unknown]
  - Peripheral swelling [Unknown]
  - Fatigue [Unknown]
  - Bone marrow failure [Unknown]
